FAERS Safety Report 8405149-4 (Version None)
Quarter: 2012Q2

REPORT INFORMATION
  Report Type: 
  Country: None (occurrence: None)
  Receive Date: 20120602
  Receipt Date: 20120517
  Transmission Date: 20120825
  Serious: No
  Sender: FDA-Public Use
  Company Number: US-BAYER-2012-050042

PATIENT
  Age: 57 Year
  Sex: Female

DRUGS (6)
  1. VITAMIN D [Concomitant]
  2. NAPROXEN (ALEVE) [Suspect]
     Indication: ARTHRITIS
     Dosage: 1 U, BID
     Route: 048
     Dates: start: 20110701, end: 20110701
  3. VITAMIN E [Concomitant]
  4. ASPIRIN [Suspect]
     Dosage: UNK
     Route: 048
     Dates: start: 20110101
  5. VITAMIN B-12 [Concomitant]
  6. ALEVE (CAPLET) [Suspect]
     Indication: ARTHRITIS
     Dosage: 1 U, BID
     Route: 048
     Dates: start: 20110701, end: 20110701

REACTIONS (2)
  - NO ADVERSE EVENT [None]
  - ABDOMINAL DISCOMFORT [None]
